APPROVED DRUG PRODUCT: METADATE ER
Active Ingredient: METHYLPHENIDATE HYDROCHLORIDE
Strength: 10MG
Dosage Form/Route: TABLET, EXTENDED RELEASE;ORAL
Application: A040306 | Product #001
Applicant: LANNETT CO INC
Approved: Oct 20, 1999 | RLD: No | RS: No | Type: DISCN